FAERS Safety Report 8616540 (Version 4)
Quarter: 2014Q3

REPORT INFORMATION
  Report Type: Spontaneous
  Country: US (occurrence: US)
  Receive Date: 20120615
  Receipt Date: 20140808
  Transmission Date: 20150326
  Serious: Yes (Hospitalization, Disabling, Other)
  Sender: FDA-Public Use
  Company Number: US-ASTRAZENECA-2012SE36216

PATIENT
  Age: 67 Year
  Sex: Male

DRUGS (20)
  1. NEXIUM [Suspect]
     Active Substance: ESOMEPRAZOLE MAGNESIUM
     Indication: DYSPEPSIA
     Dosage: TWO TIMES A DAY
     Route: 048
     Dates: start: 2009
  2. SENNA [Concomitant]
     Active Substance: SENNA LEAF\SENNOSIDES\SENNOSIDES A AND B
     Indication: FAECES SOFT
  3. VITAMIN [Concomitant]
     Active Substance: VITAMINS
  4. PRAVACHOL [Concomitant]
     Active Substance: PRAVASTATIN SODIUM
  5. ALLOPURINOL. [Concomitant]
     Active Substance: ALLOPURINOL
  6. PRAVASTATIN [Concomitant]
     Active Substance: PRAVASTATIN\PRAVASTATIN SODIUM
     Indication: BLOOD CHOLESTEROL
  7. RANITIDINE [Concomitant]
     Active Substance: RANITIDINE\RANITIDINE HYDROCHLORIDE
     Route: 048
     Dates: start: 20110216
  8. TUMS [Concomitant]
     Active Substance: CALCIUM CARBONATE
     Indication: ABDOMINAL DISCOMFORT
  9. LISINOPRIL. [Concomitant]
     Active Substance: LISINOPRIL
     Route: 048
     Dates: start: 20100504
  10. GABAPENTIN. [Concomitant]
     Active Substance: GABAPENTIN
     Indication: PAIN
  11. CEFPODOXIME [Concomitant]
     Active Substance: CEFPODOXIME
     Indication: BLOOD PRESSURE
     Dosage: BLOOD PRESSURE
  12. AMLODIPINE BESYLATE. [Concomitant]
     Active Substance: AMLODIPINE BESYLATE
  13. NEXIUM [Suspect]
     Active Substance: ESOMEPRAZOLE MAGNESIUM
     Indication: DYSPEPSIA
     Route: 048
     Dates: start: 20110307
  14. FINASTERIDE. [Concomitant]
     Active Substance: FINASTERIDE
     Indication: BLOOD CHOLESTEROL
  15. CARVEDIOL [Concomitant]
     Active Substance: CARVEDILOL
     Indication: HYPERTENSION
  16. DOXAZOSIN [Concomitant]
     Active Substance: DOXAZOSIN\DOXAZOSIN MESYLATE
  17. CALCIUM [Concomitant]
     Active Substance: CALCIUM
  18. HYDROCHLOROTHIAZIDE. [Concomitant]
     Active Substance: HYDROCHLOROTHIAZIDE
  19. NEXIUM [Suspect]
     Active Substance: ESOMEPRAZOLE MAGNESIUM
     Indication: DYSPEPSIA
     Route: 048
  20. FLUCONAZOLE. [Concomitant]
     Active Substance: FLUCONAZOLE
     Route: 048
     Dates: start: 20110811

REACTIONS (15)
  - Back disorder [Unknown]
  - Ulcer haemorrhage [Unknown]
  - Arthritis [Unknown]
  - Calcium deficiency [Unknown]
  - Osteoarthritis [Unknown]
  - Spinal compression fracture [Unknown]
  - Osteogenesis imperfecta [Unknown]
  - Osteoporosis [Unknown]
  - Joint injury [Unknown]
  - Arthralgia [Unknown]
  - Back pain [Unknown]
  - Intervertebral disc degeneration [Unknown]
  - Musculoskeletal pain [Unknown]
  - Back injury [Unknown]
  - Multiple fractures [Unknown]

NARRATIVE: CASE EVENT DATE: 2011
